FAERS Safety Report 7334025-3 (Version None)
Quarter: 2011Q1

REPORT INFORMATION
  Report Type: 
  Country: None (occurrence: None)
  Receive Date: 20110301
  Receipt Date: 20110301
  Transmission Date: 20110831
  Serious: Yes (Other)
  Sender: FDA-Public Use
  Company Number: None

PATIENT
  Age: 53 Year
  Sex: Female
  Weight: 68.0396 kg

DRUGS (1)
  1. VENLAFAXINE [Suspect]
     Dosage: 300 MG AT H.S. ORAL INTERMITTANT PAST 1 YEAR
     Route: 048

REACTIONS (4)
  - NERVOUSNESS [None]
  - CRYING [None]
  - ROAD TRAFFIC ACCIDENT [None]
  - PRODUCT SUBSTITUTION ISSUE [None]
